FAERS Safety Report 23703868 (Version 3)
Quarter: 2025Q1

REPORT INFORMATION
  Report Type: Spontaneous
  Country: US (occurrence: US)
  Receive Date: 20240403
  Receipt Date: 20250319
  Transmission Date: 20250409
  Serious: Yes (Other)
  Sender: MARINUS PHARMACEUTICALS
  Company Number: US-MARINUS PHARMACEUTICALS, INC.-MAR2024000058

PATIENT

DRUGS (30)
  1. GANAXOLONE [Suspect]
     Active Substance: GANAXOLONE
     Indication: Epilepsy
     Route: 042
     Dates: start: 20230912, end: 20230912
  2. GANAXOLONE [Suspect]
     Active Substance: GANAXOLONE
     Route: 042
     Dates: start: 20230912, end: 20230912
  3. GANAXOLONE [Suspect]
     Active Substance: GANAXOLONE
     Route: 042
     Dates: start: 20230912, end: 20230912
  4. ZULRESSO [Concomitant]
     Active Substance: BREXANOLONE
     Indication: Epilepsy
     Route: 042
     Dates: start: 20230901, end: 20230906
  5. ZULRESSO [Concomitant]
     Active Substance: BREXANOLONE
     Route: 042
  6. ZULRESSO [Concomitant]
     Active Substance: BREXANOLONE
     Route: 042
     Dates: start: 20230904
  7. ZULRESSO [Concomitant]
     Active Substance: BREXANOLONE
     Route: 042
     Dates: start: 20230905
  8. ZULRESSO [Concomitant]
     Active Substance: BREXANOLONE
     Route: 042
     Dates: end: 20230906
  9. ZULRESSO [Concomitant]
     Active Substance: BREXANOLONE
     Route: 065
  10. ZULRESSO [Concomitant]
     Active Substance: BREXANOLONE
     Route: 065
  11. ZULRESSO [Concomitant]
     Active Substance: BREXANOLONE
     Route: 065
  12. ACETAMINOPHEN [Concomitant]
     Active Substance: ACETAMINOPHEN
     Indication: Pyrexia
     Route: 065
  13. EPIDIOLEX [Concomitant]
     Active Substance: CANNABIDIOL
     Indication: Seizure
     Route: 065
  14. CLOBAZAM [Concomitant]
     Active Substance: CLOBAZAM
     Indication: Seizure
     Route: 065
  15. LEVETIRACETAM [Concomitant]
     Active Substance: LEVETIRACETAM
     Indication: Seizure
     Route: 065
  16. LAMOTRIGINE [Concomitant]
     Active Substance: LAMOTRIGINE
     Indication: Seizure
     Route: 065
  17. TOPIRAMATE [Concomitant]
     Active Substance: TOPIRAMATE
     Indication: Seizure
     Route: 065
  18. CO-ENZYME Q10 FU FANG [Concomitant]
     Indication: Supportive care
     Route: 065
  19. DEXMEDETOMIDINE HYDROCHLORIDE [Concomitant]
     Active Substance: DEXMEDETOMIDINE HYDROCHLORIDE
     Indication: Sedation
     Route: 065
  20. FAMOTIDINE [Concomitant]
     Active Substance: FAMOTIDINE
     Indication: Antacid therapy
     Route: 065
  21. FOLIC ACID DIHYDRATE [Concomitant]
     Indication: Supportive care
     Route: 065
  22. METHADONE HYDROCHLORIDE [Concomitant]
     Active Substance: METHADONE HYDROCHLORIDE
     Indication: Withdrawal syndrome
     Route: 065
  23. POLYETHYLENE GLYCOL 3350 [Concomitant]
     Active Substance: POLYETHYLENE GLYCOL 3350
     Indication: Constipation
     Route: 065
  24. PHENOBARBITAL SODIUM [Concomitant]
     Active Substance: PHENOBARBITAL SODIUM
     Indication: Seizure
     Route: 065
  25. POTASSIUM CHLORIDE EXTENDED RELEASE [Concomitant]
     Active Substance: POTASSIUM CHLORIDE
     Indication: Hypokalaemia
     Route: 065
  26. RIBOFLAVIN [Concomitant]
     Active Substance: RIBOFLAVIN
     Indication: Supportive care
     Route: 065
  27. SENNA PLUS [Concomitant]
     Active Substance: DOCUSATE SODIUM\SENNOSIDES\SENNOSIDES A AND B
     Indication: Constipation
     Route: 065
  28. THIAMINE HYDROCHLORIDE [Concomitant]
     Active Substance: THIAMINE HYDROCHLORIDE
     Indication: Supportive care
     Route: 065
  29. .ALPHA.-TOCOPHEROL [Concomitant]
     Active Substance: .ALPHA.-TOCOPHEROL
     Indication: Supportive care
     Route: 065
  30. CEFEPIME [Concomitant]
     Active Substance: CEFEPIME HYDROCHLORIDE
     Indication: Klebsiella urinary tract infection
     Route: 065

REACTIONS (2)
  - Seizure [Recovered/Resolved]
  - Electroencephalogram abnormal [Not Recovered/Not Resolved]

NARRATIVE: CASE EVENT DATE: 20230912
